FAERS Safety Report 7219880-X (Version None)
Quarter: 2011Q1

REPORT INFORMATION
  Report Type: 
  Country: None (occurrence: None)
  Receive Date: 20110111
  Receipt Date: 20110106
  Transmission Date: 20110831
  Serious: Yes (Hospitalization, Other)
  Sender: FDA-Public Use
  Company Number: BR-ROCHE-751956

PATIENT
  Sex: Female
  Weight: 74 kg

DRUGS (6)
  1. NOVALGINA [Concomitant]
  2. PEGASYS [Suspect]
     Indication: HEPATITIS C
     Dosage: DOSE: 180 MCG/0.5 ML
     Route: 058
     Dates: start: 20101011
  3. RIVOTRIL [Suspect]
     Indication: INSOMNIA
     Dosage: DOSE: 2.5 MG/ML,40 DROPS
     Route: 048
     Dates: start: 20060101
  4. RIBAVIRIN [Suspect]
     Indication: HEPATITIS C
     Dosage: DOSE: 250 MG
     Route: 048
  5. RIVOTRIL [Suspect]
     Dosage: 45 DROPS
     Route: 048
  6. DORFLEX [Concomitant]

REACTIONS (14)
  - TREMOR [None]
  - ABDOMINAL PAIN [None]
  - MYALGIA [None]
  - DECREASED APPETITE [None]
  - ARTHRALGIA [None]
  - ALOPECIA [None]
  - DRUG INEFFECTIVE [None]
  - NAUSEA [None]
  - INFLAMMATION [None]
  - DIVERTICULITIS [None]
  - PYREXIA [None]
  - HEADACHE [None]
  - IRRITABILITY [None]
  - VISION BLURRED [None]
